FAERS Safety Report 11907725 (Version 1)
Quarter: 2016Q1

REPORT INFORMATION
  Report Type: Report from Study
  Country: US (occurrence: US)
  Receive Date: 20160111
  Receipt Date: 20160111
  Transmission Date: 20160526
  Serious: No
  Sender: FDA-Public Use
  Company Number: US-ABBVIE-15P-163-1497909-00

PATIENT
  Age: 85 Year
  Sex: Female

DRUGS (2)
  1. DUODOPA [Suspect]
     Active Substance: CARBIDOPA\LEVODOPA
     Indication: PRODUCT USED FOR UNKNOWN INDICATION
     Route: 065
     Dates: start: 20151104
  2. SINEMET [Concomitant]
     Active Substance: CARBIDOPA\LEVODOPA
     Indication: PRODUCT USED FOR UNKNOWN INDICATION
     Dosage: 25-100MG AS NEEDED
     Route: 048

REACTIONS (5)
  - Stoma site erythema [Not Recovered/Not Resolved]
  - Stoma site infection [Unknown]
  - Stoma site discharge [Not Recovered/Not Resolved]
  - Underdose [Not Recovered/Not Resolved]
  - Immobile [Not Recovered/Not Resolved]

NARRATIVE: CASE EVENT DATE: 201511
